FAERS Safety Report 9135043 (Version 1)
Quarter: 2013Q1

REPORT INFORMATION
  Report Type: Other
  Country: US (occurrence: US)
  Receive Date: 20130304
  Receipt Date: 20130304
  Transmission Date: 20140127
  Serious: Yes (Other)
  Sender: FDA-Public Use
  Company Number: US-NAPPMUNDI-USA-2013-0099323

PATIENT
  Age: 7 Year
  Sex: Female

DRUGS (1)
  1. BETADINE SOLUTION SWABSTICKS [Suspect]

REACTIONS (4)
  - Accidental exposure to product [Recovered/Resolved]
  - Pneumonia aspiration [Recovered/Resolved]
  - Atelectasis [None]
  - Acute respiratory distress syndrome [None]
